FAERS Safety Report 19199583 (Version 2)
Quarter: 2021Q2

REPORT INFORMATION
  Report Type: Report from Study
  Country: JP (occurrence: JP)
  Receive Date: 20210430
  Receipt Date: 20210609
  Transmission Date: 20210717
  Serious: Yes (Death)
  Sender: FDA-Public Use
  Company Number: JP-009507513-2104JPN001460J

PATIENT
  Age: 72 Year
  Sex: Male
  Weight: 69 kg

DRUGS (2)
  1. AXITINIB [Suspect]
     Active Substance: AXITINIB
     Indication: RENAL CELL CARCINOMA STAGE IV
     Dosage: 5 MILLIGRAM, BID
     Route: 048
     Dates: start: 20210216, end: 20210320
  2. PEMBROLIZUMAB. [Suspect]
     Active Substance: PEMBROLIZUMAB
     Indication: RENAL CELL CARCINOMA STAGE IV
     Dosage: 200 MILLIGRAM, Q3W
     Route: 041
     Dates: start: 20210216, end: 20210309

REACTIONS (2)
  - Hypertension [Unknown]
  - Haemoptysis [Fatal]

NARRATIVE: CASE EVENT DATE: 2021
